FAERS Safety Report 20098533 (Version 8)
Quarter: 2024Q3

REPORT INFORMATION
  Report Type: Spontaneous
  Country: CZ (occurrence: CZ)
  Receive Date: 20211122
  Receipt Date: 20240819
  Transmission Date: 20241016
  Serious: Yes (Other)
  Sender: MYLAN
  Company Number: CZ-MYLANLABS-2021M1062162

PATIENT
  Age: 49 Year
  Sex: Female

DRUGS (26)
  1. LETROZOLE [Suspect]
     Active Substance: LETROZOLE
     Indication: Breast cancer metastatic
     Dosage: 2.5 MILLIGRAM, QD (CONTINUOUSLY, WITHOUT A BREAK)
     Route: 065
     Dates: start: 201907
  2. LETROZOLE [Suspect]
     Active Substance: LETROZOLE
     Indication: Breast cancer
     Dosage: 2.5 MILLIGRAM, QD (THERAPY WITH RIBOCICLIB)
     Route: 065
     Dates: start: 201907
  3. LETROZOLE [Suspect]
     Active Substance: LETROZOLE
     Indication: Invasive breast carcinoma
     Dosage: 2.5 MILLIGRAM, QD (CONTINUOUSLY, WITHOUT A BREAK)
     Route: 065
     Dates: start: 201908
  4. LETROZOLE [Suspect]
     Active Substance: LETROZOLE
     Indication: Hormone receptor positive HER2 negative breast cancer
  5. LETROZOLE [Suspect]
     Active Substance: LETROZOLE
     Indication: Menopause
  6. LETROZOLE [Suspect]
     Active Substance: LETROZOLE
     Indication: Breast cancer stage IV
  7. LETROZOLE [Suspect]
     Active Substance: LETROZOLE
     Indication: Hormone therapy
  8. RIBOCICLIB [Suspect]
     Active Substance: RIBOCICLIB
     Indication: Breast cancer metastatic
     Dosage: 600 MILLIGRAM, QD (FOR 3 WEEKS FOLLOWED BY A ONE-WEEK BREAK)
     Route: 065
     Dates: start: 201907
  9. RIBOCICLIB [Suspect]
     Active Substance: RIBOCICLIB
     Indication: Breast cancer
     Dosage: UNK, REGIME 3/1
     Route: 065
  10. RIBOCICLIB [Suspect]
     Active Substance: RIBOCICLIB
     Indication: Hormone receptor positive HER2 negative breast cancer
     Dosage: 600 MILLIGRAM, QD (600 MG DAILY IN THE REGIMEN 3/1)
     Route: 065
     Dates: start: 201907
  11. RIBOCICLIB [Suspect]
     Active Substance: RIBOCICLIB
     Indication: Invasive breast carcinoma
     Dosage: 600 MILLIGRAM, QD
     Route: 065
     Dates: start: 201908
  12. RIBOCICLIB [Suspect]
     Active Substance: RIBOCICLIB
     Indication: Menopause
  13. RIBOCICLIB [Suspect]
     Active Substance: RIBOCICLIB
     Indication: Breast cancer stage IV
  14. RIBOCICLIB [Suspect]
     Active Substance: RIBOCICLIB
     Indication: Hormone therapy
  15. GOSERELIN [Suspect]
     Active Substance: GOSERELIN
     Indication: Breast cancer metastatic
     Dosage: 3.6 MILLIGRAM, Q28D, 3.6 MG (ONCE EVERY 28 DAYS)
     Route: 058
     Dates: start: 201907, end: 202202
  16. GOSERELIN [Suspect]
     Active Substance: GOSERELIN
     Indication: Breast cancer
  17. GOSERELIN [Suspect]
     Active Substance: GOSERELIN
     Indication: Invasive breast carcinoma
  18. GOSERELIN [Suspect]
     Active Substance: GOSERELIN
     Indication: Hormone receptor positive HER2 negative breast cancer
  19. GOSERELIN [Suspect]
     Active Substance: GOSERELIN
     Indication: Therapeutic ovarian suppression
  20. GOSERELIN [Suspect]
     Active Substance: GOSERELIN
     Indication: Breast cancer stage IV
  21. GOSERELIN [Suspect]
     Active Substance: GOSERELIN
     Indication: Menopause
  22. ACECLOFENAC [Suspect]
     Active Substance: ACECLOFENAC
     Indication: Spinal pain
     Dosage: UNK
     Route: 065
  23. ACECLOFENAC [Suspect]
     Active Substance: ACECLOFENAC
     Indication: Pain
     Dosage: UNK, PRN, (AS NEEDED)
     Route: 065
     Dates: start: 2019
  24. ACECLOFENAC [Suspect]
     Active Substance: ACECLOFENAC
     Indication: Analgesic therapy
  25. METAMIZOLE SODIUM [Suspect]
     Active Substance: METAMIZOLE SODIUM
     Indication: Spinal pain
     Dosage: UNK UNK, PRN, (AS NEEDED)
     Route: 065
     Dates: start: 2019
  26. METAMIZOLE SODIUM [Suspect]
     Active Substance: METAMIZOLE SODIUM
     Indication: Analgesic therapy

REACTIONS (3)
  - Neutropenia [Unknown]
  - Leukopenia [Recovered/Resolved]
  - Therapy partial responder [Unknown]

NARRATIVE: CASE EVENT DATE: 20210401
